FAERS Safety Report 8840698 (Version 2)
Quarter: 2012Q4

REPORT INFORMATION
  Report Type: 
  Country: RS (occurrence: RS)
  Receive Date: 20121015
  Receipt Date: 20121218
  Transmission Date: 20130627
  Serious: Yes (Hospitalization)
  Sender: FDA-Public Use
  Company Number: RS-PFIZER INC-2012250386

PATIENT
  Age: 26 Year
  Sex: Female
  Weight: 59 kg

DRUGS (3)
  1. GENOTROPIN [Suspect]
     Indication: GROWTH HORMONE DEFICIENCY
     Dosage: 0.4 mg, 7/wk
     Route: 058
     Dates: start: 20070711
  2. HIDROCORTIZON [Concomitant]
     Indication: ADRENAL CORTICAL INSUFFICIENCY
     Dosage: 10 plus 5 mg, daily
     Route: 048
     Dates: start: 2001
  3. L-THYROXIN [Concomitant]
     Indication: HYPOTHYROIDISM
     Dosage: 75 mg, 1x/day
     Route: 048
     Dates: start: 2001

REACTIONS (1)
  - Viral infection [Recovered/Resolved]
